FAERS Safety Report 16901403 (Version 2)
Quarter: 2019Q4

REPORT INFORMATION
  Report Type: Spontaneous
  Country: US (occurrence: US)
  Receive Date: 20191009
  Receipt Date: 20191015
  Transmission Date: 20200122
  Serious: Yes (Other)
  Sender: FDA-Public Use
  Company Number: US-ABBVIE-19K-163-2950017-00

PATIENT
  Age: 31 Year
  Sex: Female

DRUGS (1)
  1. LUPRON DEPOT [Suspect]
     Active Substance: LEUPROLIDE ACETATE
     Indication: BREAST CANCER METASTATIC
     Route: 065
     Dates: start: 20170730

REACTIONS (7)
  - Arthralgia [Unknown]
  - Myalgia [Unknown]
  - Hot flush [Unknown]
  - Menopause [Unknown]
  - Vulvovaginal dryness [Unknown]
  - Neoplasm malignant [Recovered/Resolved]
  - Oophorectomy [Unknown]

NARRATIVE: CASE EVENT DATE: 201709
